FAERS Safety Report 14306197 (Version 16)
Quarter: 2018Q4

REPORT INFORMATION
  Report Type: Report from Study
  Country: CA (occurrence: CA)
  Receive Date: 20171219
  Receipt Date: 20181113
  Transmission Date: 20190204
  Serious: No
  Sender: FDA-Public Use
  Company Number: CA-BIOVERATIV-2017BV000471

PATIENT
  Age: 46 Year
  Sex: Male

DRUGS (5)
  1. ELOCTATE [Suspect]
     Active Substance: (1-743)-(1638-2332)-BLOOD-COAGULATION FACTOR VIII (SYNTHETIC HUMAN) FUSION PROTEIN WITH IMMUNOGLOBULIN G1 (SYNTHETIC HUMAN FC DOMAIN FRAGMENT), (1444-6^),(1447-9^)-BIS(DISULFIDE) WITH IMMUNOGLOBULIN G1 (SYNTHETIC HUMAN FC DOMAIN FRAGMENT)
     Route: 042
     Dates: start: 20180215
  2. CELEBREX [Concomitant]
     Active Substance: CELECOXIB
     Indication: PRODUCT USED FOR UNKNOWN INDICATION
     Route: 065
  3. MEDICINAL CANNABIS [Concomitant]
     Indication: PRODUCT USED FOR UNKNOWN INDICATION
     Route: 065
  4. ATRIPLA [Concomitant]
     Active Substance: EFAVIRENZ\EMTRICITABINE\TENOFOVIR DISOPROXIL FUMARATE
     Indication: PRODUCT USED FOR UNKNOWN INDICATION
     Route: 065
  5. ELOCTATE [Suspect]
     Active Substance: (1-743)-(1638-2332)-BLOOD-COAGULATION FACTOR VIII (SYNTHETIC HUMAN) FUSION PROTEIN WITH IMMUNOGLOBULIN G1 (SYNTHETIC HUMAN FC DOMAIN FRAGMENT), (1444-6^),(1447-9^)-BIS(DISULFIDE) WITH IMMUNOGLOBULIN G1 (SYNTHETIC HUMAN FC DOMAIN FRAGMENT)
     Indication: FACTOR VIII DEFICIENCY
     Route: 042
     Dates: start: 20171205

REACTIONS (1)
  - Product dose omission [Recovered/Resolved]

NARRATIVE: CASE EVENT DATE: 20171209
